FAERS Safety Report 14999405 (Version 2)
Quarter: 2018Q3

REPORT INFORMATION
  Report Type: Spontaneous
  Country: GB (occurrence: GB)
  Receive Date: 20180612
  Receipt Date: 20180713
  Transmission Date: 20181010
  Serious: Yes (Hospitalization)
  Sender: FDA-Public Use
  Company Number: GB-AUROBINDO-AUR-APL-2018-030574

PATIENT
  Age: 83 Year
  Sex: Female
  Weight: 60 kg

DRUGS (6)
  1. RAMIPRIL. [Suspect]
     Active Substance: RAMIPRIL
     Dosage: 2.5 MILLIGRAM
     Route: 048
     Dates: start: 20180204, end: 20180204
  2. RAMIPRIL. [Suspect]
     Active Substance: RAMIPRIL
     Indication: HYPERTENSION
     Dosage: 2.5 MILLIGRAM, DAILY
     Route: 048
     Dates: start: 20160119, end: 20160119
  3. DABIGATRAN [Concomitant]
     Active Substance: DABIGATRAN
     Indication: ATRIAL FIBRILLATION
     Dosage: UNK
     Route: 065
     Dates: start: 20170710
  4. RANITIDINE. [Concomitant]
     Active Substance: RANITIDINE
     Indication: BARRETT^S OESOPHAGUS
     Dosage: UNK
     Route: 065
     Dates: start: 20170405
  5. FUROSEMIDE. [Concomitant]
     Active Substance: FUROSEMIDE
     Indication: DYSPNOEA
     Dosage: UNK
     Route: 065
     Dates: start: 20171019
  6. SOLIFENACIN [Concomitant]
     Active Substance: SOLIFENACIN
     Indication: POLLAKIURIA
     Dosage: UNK
     Route: 065
     Dates: start: 20150203

REACTIONS (1)
  - Chest pain [Recovered/Resolved]

NARRATIVE: CASE EVENT DATE: 20180203
